FAERS Safety Report 16914631 (Version 1)
Quarter: 2019Q4

REPORT INFORMATION
  Report Type: Report from Study
  Country: None (occurrence: FR)
  Receive Date: 20191014
  Receipt Date: 20191014
  Transmission Date: 20200122
  Serious: Yes (Hospitalization, Other)
  Sender: FDA-Public Use
  Company Number: FR-ABBVIE-19K-056-2956749-00

PATIENT
  Sex: Male
  Weight: 1.5 kg

DRUGS (1)
  1. HUMIRA [Suspect]
     Active Substance: ADALIMUMAB
     Indication: MATERNAL EXPOSURE TIMING UNSPECIFIED
     Route: 064

REACTIONS (7)
  - Systemic candida [Unknown]
  - Premature baby [Unknown]
  - Bronchopulmonary disease [Unknown]
  - Enterobacter infection [Unknown]
  - Pneumothorax [Unknown]
  - Foetal exposure during pregnancy [Unknown]
  - Dysphagia [Unknown]
